FAERS Safety Report 14652994 (Version 1)
Quarter: 2018Q1

REPORT INFORMATION
  Report Type: Report from Study
  Country: CA (occurrence: CA)
  Receive Date: 20180319
  Receipt Date: 20180319
  Transmission Date: 20180509
  Serious: Yes (Hospitalization, Other)
  Sender: FDA-Public Use
  Company Number: CA-AMGEN-CANSL2018034855

PATIENT
  Age: 81 Year
  Sex: Male

DRUGS (1)
  1. PROLIA [Suspect]
     Active Substance: DENOSUMAB
     Indication: PRODUCT USED FOR UNKNOWN INDICATION
     Dosage: 60 MG/ML, UNK
     Route: 065
     Dates: start: 20160630

REACTIONS (5)
  - Platelet count decreased [Unknown]
  - Mouth haemorrhage [Unknown]
  - Epistaxis [Unknown]
  - Gait disturbance [Unknown]
  - Contusion [Unknown]
